FAERS Safety Report 7980364-2 (Version None)
Quarter: 2011Q4

REPORT INFORMATION
  Report Type: 
  Country: None (occurrence: None)
  Receive Date: 20111214
  Receipt Date: 20111206
  Transmission Date: 20120403
  Serious: Yes (Death, Hospitalization, Other)
  Sender: FDA-Public Use
  Company Number: DE-CELGENEUS-062-50794-10121776

PATIENT
  Age: 80 Year
  Sex: Male
  Weight: 82.7 kg

DRUGS (6)
  1. VIDAZA [Suspect]
     Route: 058
     Dates: start: 20101011, end: 20101015
  2. MIRTAZAPINE [Concomitant]
     Indication: DEPRESSION
     Dosage: 15 MILLIGRAM
     Route: 048
     Dates: start: 20101012, end: 20101015
  3. OXYGEN [Concomitant]
     Route: 045
     Dates: start: 20101001
  4. PLATELETS [Concomitant]
     Route: 041
     Dates: start: 20100628, end: 20101015
  5. VIDAZA [Suspect]
     Route: 058
     Dates: start: 20100719
  6. RED BLOOD CELLS [Concomitant]
     Route: 041
     Dates: start: 20100628, end: 20101015

REACTIONS (1)
  - PNEUMONIA [None]
